FAERS Safety Report 11118318 (Version 1)
Quarter: 2015Q2

REPORT INFORMATION
  Report Type: Spontaneous
  Country: US (occurrence: None)
  Receive Date: 20150515
  Receipt Date: 20150515
  Transmission Date: 20150821
  Serious: No
  Sender: FDA-Public Use
  Company Number: None

PATIENT
  Age: 20 Year
  Sex: Female
  Weight: 39.1 kg

DRUGS (2)
  1. POLYMIXIN B [Suspect]
     Active Substance: POLYMYXIN B
     Indication: CYSTIC FIBROSIS
     Route: 042
     Dates: start: 20150406
  2. POLYMIXIN B [Suspect]
     Active Substance: POLYMYXIN B
     Indication: PSEUDOMONAS INFECTION
     Route: 042
     Dates: start: 20150406

REACTIONS (1)
  - Rash generalised [None]

NARRATIVE: CASE EVENT DATE: 20150406
